FAERS Safety Report 10649805 (Version 1)
Quarter: 2014Q4

REPORT INFORMATION
  Report Type: Spontaneous
  Country: US (occurrence: US)
  Receive Date: 20141212
  Receipt Date: 20141212
  Transmission Date: 20150529
  Serious: Yes (Hospitalization)
  Sender: FDA-Public Use
  Company Number: US-INCYTE CORPORATION-2014IN003828

PATIENT
  Age: 72 Year
  Sex: Female

DRUGS (1)
  1. JAKAFI [Suspect]
     Active Substance: RUXOLITINIB
     Indication: MYELOFIBROSIS
     Route: 065

REACTIONS (4)
  - Systemic inflammatory response syndrome [Recovering/Resolving]
  - Thrombocytopenia [Unknown]
  - Respiratory failure [Recovering/Resolving]
  - Drug withdrawal syndrome [Recovering/Resolving]
